FAERS Safety Report 9486150 (Version 1)
Quarter: 2013Q3

REPORT INFORMATION
  Report Type: Spontaneous
  Country: US (occurrence: None)
  Receive Date: 20130827
  Receipt Date: 20130827
  Transmission Date: 20140515
  Serious: Yes (Death, Hospitalization)
  Sender: FDA-Public Use
  Company Number: 163-21880-13073854

PATIENT
  Age: 80 Year
  Sex: Female

DRUGS (14)
  1. REVLIMID [Suspect]
     Indication: MYELODYSPLASTIC SYNDROME
     Route: 048
     Dates: start: 20110815, end: 2013
  2. METOPROLOL SUCCINATE(METOPROLOL SUCCINATE)(UNKNOWN [Concomitant]
  3. NOVOLOG(INSULIN ASPART)(UNKNOWN) [Concomitant]
  4. LASIX(FUROSEMIDE)(UNKNOWN) [Concomitant]
  5. SPIRONOLACTONE(SPIRONOLACTONE) (UNKNOWN) [Concomitant]
  6. POTASSIUM CHLORIDE(POTASSIUM CHLORIDE) (UNKNOWN) [Concomitant]
  7. PERCOCET(OXYCOCET)(UNKNOWN) [Concomitant]
  8. PROTONIX(UNKNOWN) [Concomitant]
  9. AMOXICILLIN(AMOXICILLIN)(UNKNOWN) [Concomitant]
  10. CIPROFLOXACIN HCL(CIPROFLOXACIN HYDROCHLORIDE)(UNKNOWN) [Concomitant]
  11. HYDROCODONE/ACETAMINOPHEN(REMEDEINE)(UNKNOWN) [Concomitant]
  12. LOSARTAN POTASSIUM-HCTZ(HYZAAR) (UNKNOWN) [Concomitant]
  13. MACROBID(NITROFURANTOIN)(UNKNOWN) [Concomitant]
  14. COLACE(DOCUSATE SODIUM)(UNKNOWN) [Concomitant]

REACTIONS (1)
  - Infection [None]
